FAERS Safety Report 7990094-9 (Version None)
Quarter: 2011Q4

REPORT INFORMATION
  Report Type: 
  Country: None (occurrence: None)
  Receive Date: 20111219
  Receipt Date: 20110830
  Transmission Date: 20120403
  Serious: No
  Sender: FDA-Public Use
  Company Number: US-ASTRAZENECA-2011SE52336

PATIENT
  Sex: Female

DRUGS (3)
  1. INSULIN [Concomitant]
  2. PLAVIX [Concomitant]
  3. CRESTOR [Suspect]
     Route: 048

REACTIONS (9)
  - NEUROPATHIC ARTHROPATHY [None]
  - TYPE 1 DIABETES MELLITUS [None]
  - ARTERIOSCLEROSIS CORONARY ARTERY [None]
  - GASTROOESOPHAGEAL REFLUX DISEASE [None]
  - ARTHRITIS [None]
  - DIABETIC NEUROPATHY [None]
  - ROAD TRAFFIC ACCIDENT [None]
  - PERIPHERAL VASCULAR DISORDER [None]
  - OSTEOARTHRITIS [None]
